FAERS Safety Report 5066730-6 (Version None)
Quarter: 2006Q3

REPORT INFORMATION
  Report Type: 
  Country: None (occurrence: None)
  Receive Date: 20060714
  Receipt Date: 20051219
  Transmission Date: 20061208
  Serious: Yes (Other)
  Sender: FDA-Public Use
  Company Number: HQWYE936410OCT05

PATIENT
  Age: 33 Month
  Sex: Female
  Weight: 14.2 kg

DRUGS (1)
  1. ADVIL [Suspect]
     Dosage: LESS THAN 17 TABLETS AT ONE TIME, ORAL
     Route: 048
     Dates: start: 20050602, end: 20050602

REACTIONS (2)
  - ACCIDENTAL OVERDOSE [None]
  - PAIN IN EXTREMITY [None]
